FAERS Safety Report 15164942 (Version 1)
Quarter: 2018Q3

REPORT INFORMATION
  Report Type: Spontaneous
  Country: JP (occurrence: JP)
  Receive Date: 20180719
  Receipt Date: 20180719
  Transmission Date: 20181010
  Serious: No
  Sender: FDA-Public Use
  Company Number: JP-ALKEM LABORATORIES LIMITED-JP-ALKEM-2018-04099

PATIENT

DRUGS (2)
  1. LINEZOLID. [Suspect]
     Active Substance: LINEZOLID
     Indication: SOFT TISSUE INFECTION
     Dosage: 600 MG, BID
     Route: 048
  2. LINEZOLID. [Suspect]
     Active Substance: LINEZOLID
     Indication: SKIN INFECTION
     Dosage: 600 MG, ADMINISTERED OVER 60 MIN, IN A 300 ML SOLUTION BID
     Route: 042

REACTIONS (1)
  - Back pain [Unknown]
